FAERS Safety Report 9272227 (Version 1)
Quarter: 2013Q2

REPORT INFORMATION
  Report Type: Report from Study
  Country: US (occurrence: US)
  Receive Date: 20130506
  Receipt Date: 20130506
  Transmission Date: 20140414
  Serious: Yes (Hospitalization)
  Sender: FDA-Public Use
  Company Number: US-JNJFOC-20130416567

PATIENT
  Age: 13 Year
  Sex: Female
  Weight: 35.2 kg

DRUGS (3)
  1. REMICADE [Suspect]
     Indication: CROHN^S DISEASE
     Route: 042
     Dates: start: 20101105
  2. METHOTREXATE [Concomitant]
     Route: 065
  3. MIRALAX [Concomitant]
     Route: 065

REACTIONS (1)
  - Viral infection [Recovered/Resolved]
